FAERS Safety Report 4323538-4 (Version None)
Quarter: 2004Q1

REPORT INFORMATION
  Report Type: 
  Country: None (occurrence: None)
  Receive Date: 20040323
  Receipt Date: 20040219
  Transmission Date: 20041129
  Serious: No
  Sender: FDA-Public Use
  Company Number: USA040259894

PATIENT
  Age: 55 Year
  Sex: Male

DRUGS (1)
  1. CIALIS [Suspect]

REACTIONS (1)
  - HEADACHE [None]
